FAERS Safety Report 20665872 (Version 1)
Quarter: 2022Q2

REPORT INFORMATION
  Report Type: Spontaneous
  Country: IT (occurrence: IT)
  Receive Date: 20220402
  Receipt Date: 20220402
  Transmission Date: 20220721
  Serious: Yes (Death)
  Sender: FDA-Public Use
  Company Number: None

PATIENT
  Age: 78 Year
  Sex: Male

DRUGS (2)
  1. QUETIAPINE FUMARATE [Suspect]
     Active Substance: QUETIAPINE FUMARATE
     Indication: Psychomotor hyperactivity
     Dosage: 1 DOSAGE FORM, QD
     Route: 048
     Dates: start: 20220312
  2. COUMADIN [Suspect]
     Active Substance: WARFARIN SODIUM
     Indication: Thrombosis prophylaxis
     Dosage: 1 DOSAGE FORM, PRN (AS NECESSARY)
     Route: 048
     Dates: start: 20110101

REACTIONS (3)
  - Pancytopenia [Fatal]
  - Subdural haematoma [Fatal]
  - International normalised ratio abnormal [Fatal]

NARRATIVE: CASE EVENT DATE: 20220314
